FAERS Safety Report 16176547 (Version 2)
Quarter: 2019Q2

REPORT INFORMATION
  Report Type: Spontaneous
  Country: GB (occurrence: GB)
  Receive Date: 20190409
  Receipt Date: 20190415
  Transmission Date: 20190711
  Serious: Yes (Hospitalization)
  Sender: FDA-Public Use
  Company Number: PHHY2018GB163370

PATIENT
  Age: 47 Year
  Sex: Female

DRUGS (24)
  1. TRASTUZUMAB. [Suspect]
     Active Substance: TRASTUZUMAB
     Indication: BREAST CANCER
     Dosage: 600 MG, UNK
     Route: 058
     Dates: start: 20170918, end: 20181205
  2. SAGE. [Concomitant]
     Active Substance: SAGE
     Indication: PROPHYLAXIS
     Dosage: 1 DF, UNK (1 TABLET)
     Route: 048
  3. DENOSUMAB [Concomitant]
     Active Substance: DENOSUMAB
     Indication: PRODUCT USED FOR UNKNOWN INDICATION
     Dosage: 120 MG, QMO
     Route: 058
     Dates: start: 20171007, end: 20181120
  4. CALCICHEW D3 FORTE [Concomitant]
     Active Substance: CALCIUM\CHOLECALCIFEROL
     Indication: PROPHYLAXIS
     Dosage: 1 DF, QD (DOSE: 1 TABLET)
     Route: 048
     Dates: start: 20171007
  5. FLUCLOXACILLIN [Concomitant]
     Active Substance: FLUCLOXACILLIN
     Indication: SKIN INFECTION
     Dosage: 2000 MG, QD
     Route: 048
     Dates: start: 20180803, end: 20180810
  6. AMOXICILLIN. [Concomitant]
     Active Substance: AMOXICILLIN
     Indication: SINUSITIS
     Dosage: 2000 MG, QD
     Route: 048
     Dates: start: 20180911, end: 20180918
  7. LETROZOLE. [Suspect]
     Active Substance: LETROZOLE
     Indication: BREAST CANCER
     Dosage: 2.5 MG, QD
     Route: 048
     Dates: start: 201709
  8. FLU VACCINE VII [Concomitant]
     Active Substance: INFLUENZA VIRUS VACCINE
     Indication: ANTIVIRAL PROPHYLAXIS
     Dosage: UNK
     Route: 058
  9. CITALOPRAM [Concomitant]
     Active Substance: CITALOPRAM HYDROBROMIDE
     Indication: PRODUCT USED FOR UNKNOWN INDICATION
     Dosage: 20 MG, QD
     Route: 048
  10. SALBUTAMOL [Concomitant]
     Active Substance: ALBUTEROL
     Indication: PRODUCT USED FOR UNKNOWN INDICATION
     Dosage: 100 MG, UNK
     Route: 055
  11. PARACETAMOL [Concomitant]
     Active Substance: ACETAMINOPHEN
     Indication: PRODUCT USED FOR UNKNOWN INDICATION
     Dosage: 4 G, QD
     Route: 048
  12. ZOMORPH [Concomitant]
     Active Substance: MORPHINE SULFATE
     Dosage: 480 MG, QD
     Route: 048
     Dates: start: 20190116
  13. IBUPROFEN. [Concomitant]
     Active Substance: IBUPROFEN
     Indication: PRODUCT USED FOR UNKNOWN INDICATION
     Dosage: 1200 MG, QD
     Route: 048
  14. ORAMORPH [Concomitant]
     Active Substance: MORPHINE SULFATE
     Indication: PRODUCT USED FOR UNKNOWN INDICATION
     Dosage: 20 MG, UNK
     Route: 048
     Dates: end: 20171002
  15. ZOMORPH [Concomitant]
     Active Substance: MORPHINE SULFATE
     Dosage: 280 MG, QD
     Route: 048
     Dates: start: 20171002
  16. GABAPENTIN. [Concomitant]
     Active Substance: GABAPENTIN
     Indication: MUSCULOSKELETAL CHEST PAIN
     Dosage: 900 MG, QD (300MG MORNING AND 600MG EVENING)
     Route: 048
  17. CASSIA SENNA [Concomitant]
     Active Substance: HERBALS\SENNOSIDES
     Indication: PRODUCT USED FOR UNKNOWN INDICATION
     Dosage: 2 DF, QD
     Route: 048
  18. FLUVACCIN [Concomitant]
     Active Substance: INFLUENZA VIRUS VACCINE
     Indication: ANTIVIRAL PROPHYLAXIS
     Route: 058
  19. TRASTUZUMAB EMTANSINE [Suspect]
     Active Substance: ADO-TRASTUZUMAB EMTANSINE
     Indication: BREAST CANCER
     Dosage: 350 MG, Q3W
     Route: 042
     Dates: start: 20190115
  20. GABAPENTIN. [Concomitant]
     Active Substance: GABAPENTIN
     Dosage: 600 MG, QD
     Route: 048
     Dates: end: 20181220
  21. LAXIDO [Concomitant]
     Active Substance: POLYETHYLENE GLYCOL 3350\POTASSIUM CHLORIDE\SODIUM BICARBONATE\SODIUM CHLORIDE
     Indication: PRODUCT USED FOR UNKNOWN INDICATION
     Dosage: 1 DF, QD(1 SACHET )
     Route: 048
  22. NITROFURANTOIN. [Concomitant]
     Active Substance: NITROFURANTOIN
     Indication: URINARY TRACT INFECTION
     Dosage: 150 MG, QD
     Route: 048
     Dates: start: 20190124, end: 20190127
  23. ZOMORPH [Concomitant]
     Active Substance: MORPHINE SULFATE
     Indication: MUSCULOSKELETAL CHEST PAIN
     Dosage: 200 MG, UNK
     Route: 048
     Dates: start: 20171001
  24. LANSOPRAZOLE. [Concomitant]
     Active Substance: LANSOPRAZOLE
     Indication: PROPHYLAXIS
     Dosage: 30 MG, QD
     Route: 048

REACTIONS (6)
  - Pain in extremity [Not Recovered/Not Resolved]
  - Sinusitis [Recovered/Resolved]
  - Skin infection [Recovered/Resolved]
  - Neck pain [Recovered/Resolved]
  - Hypoaesthesia [Not Recovered/Not Resolved]
  - Musculoskeletal pain [Recovered/Resolved]

NARRATIVE: CASE EVENT DATE: 20180305
